APPROVED DRUG PRODUCT: GLYBURIDE AND METFORMIN HYDROCHLORIDE
Active Ingredient: GLYBURIDE; METFORMIN HYDROCHLORIDE
Strength: 1.25MG;250MG
Dosage Form/Route: TABLET;ORAL
Application: A076716 | Product #001 | TE Code: AB
Applicant: ACTAVIS ELIZABETH LLC
Approved: Jun 28, 2005 | RLD: No | RS: No | Type: RX